FAERS Safety Report 19447458 (Version 1)
Quarter: 2021Q2

REPORT INFORMATION
  Report Type: Spontaneous
  Country: US (occurrence: US)
  Receive Date: 20210622
  Receipt Date: 20210622
  Transmission Date: 20210717
  Serious: No
  Sender: FDA-Public Use
  Company Number: US-BIOGEN-2021BI00981462

PATIENT
  Sex: Female

DRUGS (1)
  1. VUMERITY [Suspect]
     Active Substance: DIROXIMEL FUMARATE
     Indication: MULTIPLE SCLEROSIS
     Route: 048
     Dates: start: 202101

REACTIONS (5)
  - Headache [Unknown]
  - Flushing [Recovered/Resolved]
  - Product dose omission issue [Unknown]
  - Product dose omission in error [Unknown]
  - Alopecia [Unknown]

NARRATIVE: CASE EVENT DATE: 2021
